FAERS Safety Report 20648628 (Version 1)
Quarter: 2022Q1

REPORT INFORMATION
  Report Type: Other
  Country: CA (occurrence: CA)
  Receive Date: 20220329
  Receipt Date: 20220329
  Transmission Date: 20220424
  Serious: No
  Sender: FDA-Public Use
  Company Number: CA-TOLMAR, INC.-21CA031882

PATIENT
  Sex: Male

DRUGS (1)
  1. ELIGARD [Suspect]
     Active Substance: LEUPROLIDE ACETATE
     Indication: Prostate cancer
     Dosage: 45 MILLIGRAM, Q 6 MONTH
     Route: 058
     Dates: start: 20211206

REACTIONS (1)
  - Fatigue [Unknown]
